FAERS Safety Report 17520640 (Version 1)
Quarter: 2020Q1

REPORT INFORMATION
  Report Type: Spontaneous
  Country: US (occurrence: US)
  Receive Date: 20200310
  Receipt Date: 20200310
  Transmission Date: 20200409
  Serious: No
  Sender: FDA-Public Use
  Company Number: US-PFIZER INC-2020102870

PATIENT
  Age: 64 Year
  Sex: Female

DRUGS (1)
  1. XELJANZ XR [Suspect]
     Active Substance: TOFACITINIB CITRATE
     Indication: RHEUMATOID ARTHRITIS
     Dosage: 11 MG, DAILY(TAKE 1 TABLET BY MOUTH DAILY AS DIRECTED)
     Route: 048

REACTIONS (5)
  - Vitamin D decreased [Unknown]
  - Upper respiratory tract infection [Unknown]
  - Sluggishness [Unknown]
  - Fatigue [Unknown]
  - Nasopharyngitis [Unknown]
